FAERS Safety Report 6297582-4 (Version None)
Quarter: 2009Q3

REPORT INFORMATION
  Report Type: 
  Country: None (occurrence: None)
  Receive Date: 20090805
  Receipt Date: 20090731
  Transmission Date: 20100115
  Serious: Yes (Hospitalization, Other)
  Sender: FDA-Public Use
  Company Number: GB-BRISTOL-MYERS SQUIBB COMPANY-14725022

PATIENT
  Age: 89 Year
  Sex: Male

DRUGS (4)
  1. SINEMET CR [Suspect]
     Indication: PARKINSON'S DISEASE
  2. ACETYLSALICYLIC ACID [Suspect]
  3. ROPINIROLE [Concomitant]
  4. CITALOPRAM [Concomitant]

REACTIONS (1)
  - CEREBROVASCULAR ACCIDENT [None]
